FAERS Safety Report 10127173 (Version 1)
Quarter: 2014Q2

REPORT INFORMATION
  Report Type: Spontaneous
  Country: GB (occurrence: GB)
  Receive Date: 20140428
  Receipt Date: 20140428
  Transmission Date: 20141212
  Serious: Yes (Other)
  Sender: FDA-Public Use
  Company Number: GB-MYLANLABS-2014S1009089

PATIENT
  Age: 28 Year
  Sex: Female

DRUGS (14)
  1. PROTIONAMIDE [Suspect]
     Indication: TUBERCULOSIS
     Route: 065
  2. CYCLOSERINE [Suspect]
     Indication: TUBERCULOSIS
     Route: 065
  3. CYCLOSERINE [Suspect]
     Route: 065
  4. AZITHROMYCIN [Suspect]
     Indication: TUBERCULOSIS
     Route: 065
  5. AZITHROMYCIN [Suspect]
     Indication: OFF LABEL USE
     Route: 065
  6. LINEZOLID [Suspect]
     Indication: TUBERCULOSIS
     Route: 065
  7. AMINOSALICYLIC ACID [Suspect]
     Indication: TUBERCULOSIS
     Route: 065
  8. PYRAZINAMIDE [Concomitant]
     Indication: TUBERCULOSIS
     Route: 065
     Dates: start: 201105
  9. MOXIFLOXACIN [Concomitant]
     Indication: TUBERCULOSIS
     Route: 065
  10. AMIKACIN [Concomitant]
     Indication: TUBERCULOSIS
     Route: 065
  11. MEROPENEM [Concomitant]
     Indication: TUBERCULOSIS
     Route: 065
  12. CO-AMOXICLAV [Concomitant]
     Indication: TUBERCULOSIS
     Route: 065
  13. BEDAQUILINE [Concomitant]
     Indication: TUBERCULOSIS
     Dosage: 400MG DAILY FOR 2 WEEKS, THEN 200MG THREE TIMES A WEEK FOR 22 WEEKS
     Route: 065
     Dates: start: 201108
  14. PYRIDOXINE [Concomitant]
     Dosage: HIGH-DOSE
     Route: 065

REACTIONS (3)
  - Neuropathy peripheral [Unknown]
  - Secondary hypothyroidism [Unknown]
  - Nausea [Unknown]
